FAERS Safety Report 6818469-1 (Version None)
Quarter: 2010Q3

REPORT INFORMATION
  Report Type: 
  Country: None (occurrence: None)
  Receive Date: 20100706
  Receipt Date: 20081119
  Transmission Date: 20110219
  Serious: Yes (Disabling)
  Sender: FDA-Public Use
  Company Number: PFIZER INC-2008048629

PATIENT
  Sex: Female

DRUGS (5)
  1. AZITHROMYCIN [Suspect]
     Indication: STOMATITIS
  2. DIFLUCAN [Suspect]
     Indication: FUNGAL INFECTION
  3. VORICONAZOLE [Suspect]
  4. AMOXICILLIN [Suspect]
  5. ALBUTEROL [Concomitant]

REACTIONS (2)
  - STEVENS-JOHNSON SYNDROME [None]
  - TOXIC EPIDERMAL NECROLYSIS [None]
